FAERS Safety Report 4553961-4 (Version None)
Quarter: 2005Q1

REPORT INFORMATION
  Report Type: 
  Country: None (occurrence: None)
  Receive Date: 20050118
  Receipt Date: 20050104
  Transmission Date: 20050727
  Serious: Yes (Other)
  Sender: FDA-Public Use
  Company Number: US-JNJFOC-20041205546

PATIENT
  Sex: Male
  Weight: 79.83 kg

DRUGS (4)
  1. REMICADE [Suspect]
     Indication: CROHN'S DISEASE
     Route: 042
  2. REMICADE [Suspect]
     Dosage: 4 INFUSIONS
     Route: 042
  3. AZATHIOPRINE [Concomitant]
     Indication: IMMUNOSUPPRESSION
  4. PREDNISONE [Concomitant]
     Indication: IMMUNOSUPPRESSION

REACTIONS (1)
  - NON-HODGKIN'S LYMPHOMA [None]
